FAERS Safety Report 4682783-9 (Version None)
Quarter: 2005Q2

REPORT INFORMATION
  Report Type: 
  Country: None (occurrence: None)
  Receive Date: 20050602
  Receipt Date: 20050420
  Transmission Date: 20051028
  Serious: No
  Sender: FDA-Public Use
  Company Number: USA050496187

PATIENT
  Age: 43 Year
  Sex: Female

DRUGS (3)
  1. CYMBALTA [Suspect]
     Indication: DEPRESSION
  2. MULTI-VITAMIN [Concomitant]
  3. VITAMIN B6 [Concomitant]

REACTIONS (2)
  - DIARRHOEA [None]
  - MENSTRUATION IRREGULAR [None]
